FAERS Safety Report 4861163-7 (Version None)
Quarter: 2005Q4

REPORT INFORMATION
  Report Type: 
  Country: None (occurrence: None)
  Receive Date: 20051216
  Receipt Date: 20051205
  Transmission Date: 20060501
  Serious: Yes (Other)
  Sender: FDA-Public Use
  Company Number: 200514210GDS

PATIENT
  Age: 75 Year
  Sex: Female

DRUGS (6)
  1. CIPRO [Suspect]
     Indication: BRONCHOPNEUMOPATHY
     Dosage: 200 MG, TOTAL DAILY, INTRAVENOUS
     Route: 042
     Dates: start: 20051129
  2. TARGOSID (TEICOPLANIN) [Suspect]
     Indication: BRONCHOPNEUMOPATHY
     Dosage: 200 MG, TOTAL DAILY, INTRAVENOUS
     Route: 042
     Dates: start: 20051129
  3. INSULIN N.O.S. [Concomitant]
  4. URBASON [Concomitant]
  5. ATEM [Concomitant]
  6. FLUIMUCIL [Concomitant]

REACTIONS (3)
  - AGITATION [None]
  - DYSPNOEA [None]
  - FEELING HOT [None]
